FAERS Safety Report 7755393-4 (Version None)
Quarter: 2011Q3

REPORT INFORMATION
  Report Type: 
  Country: None (occurrence: None)
  Receive Date: 20110916
  Receipt Date: 20110906
  Transmission Date: 20111222
  Serious: Yes (Hospitalization, Other)
  Sender: FDA-Public Use
  Company Number: GB-JNJFOC-20110608634

PATIENT
  Sex: Female

DRUGS (1)
  1. HALDOL [Suspect]
     Indication: PRODUCT USED FOR UNKNOWN INDICATION
     Route: 065

REACTIONS (12)
  - HOSPITALISATION [None]
  - HALLUCINATION, AUDITORY [None]
  - HALLUCINATION, VISUAL [None]
  - HYPERSENSITIVITY [None]
  - DRUG INEFFECTIVE [None]
  - IRRITABLE BOWEL SYNDROME [None]
  - RASH [None]
  - SUICIDAL IDEATION [None]
  - DELUSION [None]
  - SEDATION [None]
  - HEADACHE [None]
  - CONSTIPATION [None]
